FAERS Safety Report 20966626 (Version 1)
Quarter: 2022Q2

REPORT INFORMATION
  Report Type: Report from Study
  Country: US (occurrence: US)
  Receive Date: 20220616
  Receipt Date: 20220616
  Transmission Date: 20220720
  Serious: Yes (Hospitalization)
  Sender: FDA-Public Use
  Company Number: US-JNJFOC-20220626776

PATIENT
  Age: 63 Year
  Sex: Male
  Weight: 74.1 kg

DRUGS (2)
  1. EPOPROSTENOL SODIUM [Suspect]
     Active Substance: EPOPROSTENOL SODIUM
     Indication: Pulmonary arterial hypertension
     Route: 042
  2. TADALAFIL [Concomitant]
     Active Substance: TADALAFIL

REACTIONS (2)
  - Device occlusion [Unknown]
  - Underdose [Unknown]

NARRATIVE: CASE EVENT DATE: 20220517
